FAERS Safety Report 5620275-0 (Version None)
Quarter: 2008Q1

REPORT INFORMATION
  Report Type: 
  Country: None (occurrence: None)
  Receive Date: 20080208
  Receipt Date: 20080128
  Transmission Date: 20080703
  Serious: Yes (Other)
  Sender: FDA-Public Use
  Company Number: US-WYE-H02362908

PATIENT
  Sex: Female

DRUGS (3)
  1. PREMPRO [Suspect]
     Indication: MENOPAUSE
     Dosage: 0.45/1.5 MG
     Route: 048
  2. PREMPRO [Suspect]
     Dosage: 0.625MG/2.5 MG
     Route: 048
     Dates: start: 20050101
  3. LO/OVRAL [Suspect]
     Indication: CONTRACEPTION
     Route: 048
     Dates: start: 19750101, end: 20050101

REACTIONS (4)
  - HEPATOCELLULAR INJURY [None]
  - PHARMACEUTICAL PRODUCT COUNTERFEIT [None]
  - WEIGHT DECREASED [None]
  - WEIGHT INCREASED [None]
